FAERS Safety Report 8082356-4 (Version None)
Quarter: 2012Q1

REPORT INFORMATION
  Report Type: 
  Country: None (occurrence: None)
  Receive Date: 20120127
  Receipt Date: 20110217
  Transmission Date: 20120608
  Serious: No
  Sender: FDA-Public Use
  Company Number: US-ABBOTT-11P-163-0706059-00

PATIENT
  Age: 50 Year
  Sex: Male

DRUGS (2)
  1. LAVASA PRESCRIPTION FISH OIL [Concomitant]
     Indication: PRODUCT USED FOR UNKNOWN INDICATION
  2. HUMIRA [Suspect]
     Indication: CROHN'S DISEASE
     Dates: start: 20101003

REACTIONS (3)
  - INJECTION SITE HAEMATOMA [None]
  - RASH [None]
  - INCREASED TENDENCY TO BRUISE [None]
